FAERS Safety Report 11285991 (Version 1)
Quarter: 2015Q3

REPORT INFORMATION
  Report Type: Spontaneous
  Country: US (occurrence: US)
  Receive Date: 20150721
  Receipt Date: 20150721
  Transmission Date: 20151125
  Serious: No
  Sender: FDA-Public Use
  Company Number: US-UNITED THERAPEUTICS-UNT-2015-000671

PATIENT
  Age: 5 Year
  Sex: Male
  Weight: 27.21 kg

DRUGS (7)
  1. TYVASO [Suspect]
     Active Substance: TREPROSTINIL
     Dosage: 12-54 ?G, QID
     Dates: start: 20150106
  2. TYVASO [Suspect]
     Active Substance: TREPROSTINIL
     Dosage: 12-54 ?G, QID
     Dates: start: 20150106
  3. TYVASO [Suspect]
     Active Substance: TREPROSTINIL
     Dosage: 12-54 ?G, QID
     Dates: start: 20150106
  4. TYVASO [Suspect]
     Active Substance: TREPROSTINIL
     Indication: PULMONARY ARTERIAL HYPERTENSION
     Dosage: 12-54 ?G, QID
     Dates: start: 20141230
  5. TYVASO [Suspect]
     Active Substance: TREPROSTINIL
     Dosage: UNK
  6. TRACLEER [Concomitant]
     Active Substance: BOSENTAN
     Indication: PRODUCT USED FOR UNKNOWN INDICATION
  7. REVATIO [Concomitant]
     Active Substance: SILDENAFIL CITRATE
     Indication: PRODUCT USED FOR UNKNOWN INDICATION

REACTIONS (14)
  - Decreased activity [Recovered/Resolved]
  - Abdominal discomfort [Recovered/Resolved]
  - Vomiting [Unknown]
  - Dizziness [Unknown]
  - Respiratory tract infection [Recovering/Resolving]
  - Oropharyngeal pain [Unknown]
  - Muscle spasms [Unknown]
  - Pallor [Recovered/Resolved]
  - Flushing [Unknown]
  - Throat irritation [Recovered/Resolved]
  - Diarrhoea [Unknown]
  - Oxygen saturation decreased [Recovered/Resolved]
  - Headache [Unknown]
  - Cough [Recovered/Resolved]

NARRATIVE: CASE EVENT DATE: 201501
